FAERS Safety Report 25371643 (Version 1)
Quarter: 2025Q2

REPORT INFORMATION
  Report Type: Spontaneous
  Country: GR (occurrence: GR)
  Receive Date: 20250529
  Receipt Date: 20250529
  Transmission Date: 20250716
  Serious: Yes (Hospitalization)
  Sender: GLAXOSMITHKLINE
  Company Number: GR-GSK-GR2025EME006142

PATIENT

DRUGS (5)
  1. NUCALA [Suspect]
     Active Substance: MEPOLIZUMAB
     Indication: Asthma
     Dosage: 1 DF, MO INJECTION
     Dates: start: 2020
  2. BELIFAX [Concomitant]
     Indication: Gastrointestinal disorder
     Dosage: UNK, QD
  3. SYMBICORT [Concomitant]
     Active Substance: BUDESONIDE\FORMOTEROL FUMARATE DIHYDRATE
     Indication: Lung disorder
     Dosage: 2 DF, QD ONE DOSE IN MORNING AND 1 DOSE IN EVENING
  4. MONTELUKAST SODIUM [Concomitant]
     Active Substance: MONTELUKAST SODIUM
     Indication: Lung disorder
     Dosage: UNK UNK, QD
  5. ROSUVASTATIN [Concomitant]
     Active Substance: ROSUVASTATIN
     Indication: Blood cholesterol

REACTIONS (3)
  - Lower limb fracture [Unknown]
  - Fall [Unknown]
  - Viral infection [Recovered/Resolved]

NARRATIVE: CASE EVENT DATE: 20241126
